FAERS Safety Report 4643658-4 (Version None)
Quarter: 2005Q2

REPORT INFORMATION
  Report Type: 
  Country: None (occurrence: None)
  Receive Date: 20050425
  Receipt Date: 20050418
  Transmission Date: 20051028
  Serious: Yes (Disabling)
  Sender: FDA-Public Use
  Company Number: CA-JNJFOC-20050404713

PATIENT

DRUGS (3)
  1. LEVOFLOXACIN [Suspect]
     Indication: INFECTION
  2. SINEMET [Concomitant]
  3. SINEMET [Concomitant]
     Indication: PARKINSON'S DISEASE

REACTIONS (1)
  - MOBILITY DECREASED [None]
